FAERS Safety Report 20135933 (Version 2)
Quarter: 2021Q4

REPORT INFORMATION
  Report Type: Spontaneous
  Country: BR (occurrence: BR)
  Receive Date: 20211201
  Receipt Date: 20211209
  Transmission Date: 20220303
  Serious: Yes (Hospitalization)
  Sender: FDA-Public Use
  Company Number: US-NOVARTISPH-NVSC2021BR271576

PATIENT
  Sex: Female

DRUGS (1)
  1. FEMARA [Suspect]
     Active Substance: LETROZOLE
     Indication: Breast cancer
     Dosage: 1 UNK, QD
     Route: 065

REACTIONS (4)
  - Pulmonary oedema [Recovered/Resolved]
  - Cardiac disorder [Recovered/Resolved]
  - Renal disorder [Recovered/Resolved]
  - Urinary tract infection [Recovered/Resolved]
